FAERS Safety Report 14407159 (Version 3)
Quarter: 2018Q2

REPORT INFORMATION
  Report Type: Report from Study
  Country: ID (occurrence: ID)
  Receive Date: 20180118
  Receipt Date: 20180425
  Transmission Date: 20180711
  Serious: Yes (Death, Life-Threatening, Hospitalization, Other)
  Sender: FDA-Public Use
  Company Number: ID-BAYER-2018-006629

PATIENT
  Age: 77 Year
  Sex: Male

DRUGS (2)
  1. NEXAVAR [Suspect]
     Active Substance: SORAFENIB
     Indication: HEPATOCELLULAR CARCINOMA
     Dosage: 200 MG, BID (REPORTED AS 2X200 MG)
     Route: 048
     Dates: start: 20180205, end: 20180307
  2. NEXAVAR [Suspect]
     Active Substance: SORAFENIB
     Indication: HEPATOCELLULAR CARCINOMA
     Dosage: 200 MG, BID
     Route: 048
     Dates: start: 20171012, end: 20171223

REACTIONS (13)
  - Hypoglycaemia [Fatal]
  - Melaena [Fatal]
  - Anaemia [Fatal]
  - Loss of consciousness [None]
  - Haemoglobin decreased [None]
  - Food refusal [None]
  - Faeces discoloured [Recovered/Resolved]
  - Haemoglobin decreased [Recovering/Resolving]
  - Dyspnoea [None]
  - Hypoalbuminaemia [Fatal]
  - Gastric disorder [None]
  - Hypersomnia [None]
  - Coma hepatic [Fatal]

NARRATIVE: CASE EVENT DATE: 20171223
